FAERS Safety Report 9028511 (Version 3)
Quarter: 2013Q1

REPORT INFORMATION
  Report Type: Report from Study
  Country: DE (occurrence: DE)
  Receive Date: 20130124
  Receipt Date: 20130215
  Transmission Date: 20140127
  Serious: Yes (Hospitalization)
  Sender: FDA-Public Use
  Company Number: DE-ROCHE-1180940

PATIENT
  Age: 86 Year
  Sex: Female

DRUGS (7)
  1. TRASTUZUMAB [Suspect]
     Indication: GASTRIC CANCER
     Dosage: DATE OF LAST ADMINISTRATION: 08/JAN/2013
     Route: 042
     Dates: start: 20130108
  2. MCP [Concomitant]
     Indication: NAUSEA
     Route: 065
     Dates: start: 20130102, end: 20130121
  3. MCP [Concomitant]
     Indication: VOMITING
     Route: 065
     Dates: start: 20130116, end: 20130121
  4. ZOFRAN [Concomitant]
     Indication: NAUSEA
     Route: 065
     Dates: start: 20130116, end: 20130121
  5. ZOFRAN [Concomitant]
     Indication: VOMITING
     Route: 065
     Dates: start: 20130116, end: 20130121
  6. IMODIUM [Concomitant]
     Indication: DIARRHOEA
     Route: 065
     Dates: start: 20130116, end: 20130121
  7. IMODIUM [Concomitant]
     Route: 065
     Dates: start: 20130116, end: 20130121

REACTIONS (1)
  - Hypophagia [Recovered/Resolved]
